FAERS Safety Report 6036523-1 (Version None)
Quarter: 2009Q1

REPORT INFORMATION
  Report Type: 
  Country: None (occurrence: None)
  Receive Date: 20090114
  Receipt Date: 20090108
  Transmission Date: 20090719
  Serious: Yes (Hospitalization)
  Sender: FDA-Public Use
  Company Number: GB-WYE-G02903609

PATIENT
  Age: 15 Year
  Sex: Male
  Weight: 52 kg

DRUGS (1)
  1. IBUPROFEN TABLETS [Suspect]
     Indication: PROCEDURAL PAIN
     Route: 048

REACTIONS (4)
  - CIRCULATORY COLLAPSE [None]
  - GASTRIC ULCER HAEMORRHAGE [None]
  - HAEMOGLOBIN ABNORMAL [None]
  - OVERDOSE [None]
